FAERS Safety Report 8476653-8 (Version None)
Quarter: 2012Q2

REPORT INFORMATION
  Report Type: 
  Country: None (occurrence: None)
  Receive Date: 20120628
  Receipt Date: 20120619
  Transmission Date: 20120825
  Serious: Yes (Other)
  Sender: FDA-Public Use
  Company Number: BR-TEVA-264149ISR

PATIENT
  Sex: Female
  Weight: 55 kg

DRUGS (4)
  1. FLUOXETINE [Concomitant]
     Indication: DEPRESSION
  2. DIPYRONE INJ [Concomitant]
     Indication: HEADACHE
  3. COPAXONE [Suspect]
     Indication: MULTIPLE SCLEROSIS
     Dosage: 20 MILLIGRAM;
     Route: 058
     Dates: start: 20051124
  4. CEFALIV [Concomitant]
     Indication: HEADACHE

REACTIONS (1)
  - MALIGNANT MELANOMA IN SITU [None]
